FAERS Safety Report 18931119 (Version 1)
Quarter: 2021Q1

REPORT INFORMATION
  Report Type: Other
  Country: NL (occurrence: NL)
  Receive Date: 20210223
  Receipt Date: 20210223
  Transmission Date: 20210420
  Serious: Yes (Hospitalization, Other)
  Sender: FDA-Public Use
  Company Number: NL-ROCHE-2760296

PATIENT

DRUGS (13)
  1. NANDROLONE [Suspect]
     Active Substance: NANDROLONE
     Indication: DRUG ABUSE
     Route: 065
  2. OXANDROLONE. [Suspect]
     Active Substance: OXANDROLONE
     Indication: DRUG ABUSE
     Route: 065
  3. MESTEROLONE [Suspect]
     Active Substance: MESTEROLONE
     Indication: DRUG ABUSE
     Route: 065
  4. SOMATROPIN. [Suspect]
     Active Substance: SOMATROPIN
     Indication: DRUG ABUSE
     Route: 058
  5. SUSTANON [Suspect]
     Active Substance: TESTOSTERONE
     Indication: DRUG ABUSE
     Route: 065
  6. TESTOSTERONE CYPIONATE. [Suspect]
     Active Substance: TESTOSTERONE CYPIONATE
     Indication: DRUG ABUSE
     Route: 065
  7. TESTOSTERONE ENANTHATE. [Suspect]
     Active Substance: TESTOSTERONE ENANTHATE
     Indication: DRUG ABUSE
     Route: 065
  8. STANOZOLOL [Suspect]
     Active Substance: STANOZOLOL
     Indication: DRUG ABUSE
     Route: 065
  9. DROSTANOLONE [Suspect]
     Active Substance: DROMOSTANOLONE
     Indication: DRUG ABUSE
     Route: 065
  10. TESTOSTERONE PROPIONATE. [Suspect]
     Active Substance: TESTOSTERONE PROPIONATE
     Indication: DRUG ABUSE
     Route: 065
  11. TRENBOLONE [Suspect]
     Active Substance: TRENBOLONE
     Indication: DRUG ABUSE
     Route: 065
  12. METHENOLONE [Suspect]
     Active Substance: METHENOLONE
     Indication: DRUG ABUSE
     Route: 065
  13. OXYMETHOLONE [Suspect]
     Active Substance: OXYMETHOLONE
     Indication: DRUG ABUSE
     Route: 065

REACTIONS (32)
  - Renal injury [Unknown]
  - Drug abuse [Unknown]
  - Polycythaemia [Unknown]
  - Agitation [Unknown]
  - Skin infection [Unknown]
  - Insomnia [Unknown]
  - Hyperhidrosis [Unknown]
  - Delusion [Unknown]
  - Syncope [Unknown]
  - Mood altered [Unknown]
  - Infertility [Unknown]
  - Alopecia [Unknown]
  - Sleep apnoea syndrome [Unknown]
  - Acne [Unknown]
  - Liver function test abnormal [Unknown]
  - Testicular atrophy [Unknown]
  - High density lipoprotein decreased [Unknown]
  - Erectile dysfunction [Unknown]
  - Proteinuria [Unknown]
  - Blood creatine phosphokinase increased [Unknown]
  - Secondary hypogonadism [Unknown]
  - Fluid retention [Unknown]
  - Pruritus [Unknown]
  - Androgen deficiency [Unknown]
  - Fatigue [Unknown]
  - Palpitations [Unknown]
  - Anxiety [Unknown]
  - Libido decreased [Unknown]
  - Wound infection [Unknown]
  - Gynaecomastia [Unknown]
  - Derealisation [Unknown]
  - Dependence [Unknown]
